FAERS Safety Report 10154123 (Version 1)
Quarter: 2014Q2

REPORT INFORMATION
  Report Type: Spontaneous
  Country: US (occurrence: None)
  Receive Date: 20140502
  Receipt Date: 20140502
  Transmission Date: 20141212
  Serious: Yes (Hospitalization, Other)
  Sender: FDA-Public Use
  Company Number: UTC-047604

PATIENT
  Age: 69 Year
  Sex: Male
  Weight: 86.98 kg

DRUGS (1)
  1. TYVASCO [Suspect]
     Indication: PULMONARY ARTERIAL HYPERTENSION
     Dosage: 18 TO 54 MICROGRAM ( 4 IN 1 D) INHALATION
     Route: 055
     Dates: start: 20131031

REACTIONS (3)
  - Fluid retention [None]
  - Oedema [None]
  - Weight increased [None]
